FAERS Safety Report 5864446-7 (Version None)
Quarter: 2008Q3

REPORT INFORMATION
  Report Type: 
  Country: None (occurrence: None)
  Receive Date: 20080829
  Receipt Date: 20080820
  Transmission Date: 20090109
  Serious: Yes (Life-Threatening)
  Sender: FDA-Public Use
  Company Number: US-RB-003470-08

PATIENT
  Sex: Male
  Weight: 81 kg

DRUGS (1)
  1. SUBOXONE [Suspect]
     Dosage: ONE SINGLE DOSE OF 8 MG.
     Route: 060
     Dates: start: 20080401, end: 20080401

REACTIONS (4)
  - HYPERSENSITIVITY [None]
  - THROAT TIGHTNESS [None]
  - URTICARIA [None]
  - VOMITING [None]
